FAERS Safety Report 25687457 (Version 1)
Quarter: 2025Q3

REPORT INFORMATION
  Report Type: Report from Study
  Country: US (occurrence: US)
  Receive Date: 20250817
  Receipt Date: 20250817
  Transmission Date: 20251020
  Serious: Yes (Other)
  Sender: AUROBINDO
  Company Number: US-AUROBINDO-AUR-APL-2025-041923

PATIENT
  Age: 5 Year
  Sex: Female

DRUGS (2)
  1. NADOLOL [Suspect]
     Active Substance: NADOLOL
     Indication: Long QT syndrome
     Route: 065
  2. NADOLOL [Suspect]
     Active Substance: NADOLOL
     Route: 065

REACTIONS (1)
  - Drug intolerance [Unknown]
